FAERS Safety Report 4317373-0 (Version None)
Quarter: 2004Q1

REPORT INFORMATION
  Report Type: 
  Country: None (occurrence: None)
  Receive Date: 20040316
  Receipt Date: 20040316
  Transmission Date: 20041129
  Serious: Yes (Hospitalization)
  Sender: FDA-Public Use
  Company Number: None

PATIENT
  Age: 46 Year
  Sex: Female

DRUGS (13)
  1. TARCEVA [Suspect]
     Indication: GLIOBLASTOMA MULTIFORME
     Dosage: 50 MG X 2 WKS  100 MG X1 WK
     Dates: start: 20040217
  2. TEMODAR [Suspect]
     Indication: GLIOBLASTOMA MULTIFORME
     Dosage: 154 MG /DAY X 3 WKS
     Dates: start: 20040217
  3. RADIATION THERAPY [Suspect]
  4. KYTRIL [Concomitant]
  5. DECADRON [Concomitant]
  6. PERCOCET [Concomitant]
  7. ELAVIL [Concomitant]
  8. PEPCID [Concomitant]
  9. NORVASC [Concomitant]
  10. XANAX [Concomitant]
  11. THORAZINE [Concomitant]
  12. LOVENOX [Concomitant]
  13. COLACE [Concomitant]

REACTIONS (4)
  - ABDOMINAL PAIN [None]
  - HAEMATOMA [None]
  - HAEMORRHAGE [None]
  - IMPLANT SITE REACTION [None]
